FAERS Safety Report 20769189 (Version 2)
Quarter: 2022Q4

REPORT INFORMATION
  Report Type: Spontaneous
  Country: US (occurrence: US)
  Receive Date: 20220429
  Receipt Date: 20221021
  Transmission Date: 20230113
  Serious: No
  Sender: FDA-Public Use
  Company Number: US-PFIZER INC-202200634432

PATIENT
  Age: 65 Year
  Sex: Female

DRUGS (1)
  1. XELJANZ XR [Suspect]
     Active Substance: TOFACITINIB CITRATE
     Indication: Rheumatoid arthritis
     Dosage: 11 MG, DAILY
     Route: 048

REACTIONS (3)
  - Blood cholesterol increased [Unknown]
  - Discouragement [Unknown]
  - Depressed mood [Unknown]
